FAERS Safety Report 21652118 (Version 4)
Quarter: 2023Q1

REPORT INFORMATION
  Report Type: Spontaneous
  Country: JP (occurrence: JP)
  Receive Date: 20221128
  Receipt Date: 20230202
  Transmission Date: 20230418
  Serious: Yes (Death)
  Sender: FDA-Public Use
  Company Number: JP-PFIZER INC-PV202200108747

PATIENT
  Age: 68 Year
  Sex: Female
  Weight: 41.3 kg

DRUGS (8)
  1. LORBRENA [Suspect]
     Active Substance: LORLATINIB
     Indication: Non-small cell lung cancer
     Dosage: 100 MG, DAILY
     Dates: start: 20200103
  2. ELOBIXIBAT [Concomitant]
     Active Substance: ELOBIXIBAT
     Indication: Constipation
     Dosage: 10 MG, 1X/DAY, BEFORE BREAKFAST
     Route: 048
     Dates: start: 20200103, end: 20200118
  3. MAGNESIUM OXIDE [Concomitant]
     Active Substance: MAGNESIUM OXIDE
     Indication: Constipation
     Dosage: 330 MG, 2X/DAY
     Route: 048
     Dates: start: 20200103, end: 20200118
  4. FAMOTIDINE [Concomitant]
     Active Substance: FAMOTIDINE
     Indication: Gastrooesophageal reflux disease
     Dosage: 20 MG, 2X/DAY
     Route: 048
     Dates: start: 20200103, end: 20200118
  5. DOMPERIDONE [Concomitant]
     Active Substance: DOMPERIDONE
     Indication: Chronic gastritis
     Dosage: 10 MG, 3X/DAY
     Route: 048
     Dates: start: 20200103, end: 20200118
  6. ROSUVASTATIN [Concomitant]
     Active Substance: ROSUVASTATIN
     Indication: Hypercholesterolaemia
     Dosage: 5 MG, 1X/DAY
     Route: 048
     Dates: start: 20200103, end: 20200118
  7. NOVAMIN [Concomitant]
     Indication: Nausea
     Dosage: 5 MG, 1X/DAY
     Route: 048
     Dates: start: 20200103, end: 20200118
  8. ROZEREM [Concomitant]
     Active Substance: RAMELTEON
     Indication: Insomnia
     Dosage: 8 MG, 1X/DAY
     Route: 048
     Dates: start: 20200103, end: 20200118

REACTIONS (1)
  - Cardiac failure acute [Fatal]

NARRATIVE: CASE EVENT DATE: 20200117
